FAERS Safety Report 10357271 (Version 2)
Quarter: 2014Q3

REPORT INFORMATION
  Report Type: Spontaneous
  Country: US (occurrence: None)
  Receive Date: 20140730
  Receipt Date: 20140811
  Transmission Date: 20150326
  Serious: Yes (Death)
  Sender: FDA-Public Use
  Company Number: UNT-2014-004464

PATIENT
  Age: 77 Year
  Sex: Female
  Weight: 50.1 kg

DRUGS (3)
  1. REMODULIN [Suspect]
     Active Substance: TREPROSTINIL
     Indication: COR PULMONALE CHRONIC
     Route: 058
     Dates: start: 20131220
  2. WARFARIN [Concomitant]
     Active Substance: WARFARIN
  3. REVATIO [Concomitant]
     Active Substance: SILDENAFIL CITRATE

REACTIONS (2)
  - Hospice care [None]
  - Investigation [None]

NARRATIVE: CASE EVENT DATE: 20140707
